FAERS Safety Report 17769115 (Version 1)
Quarter: 2020Q2

REPORT INFORMATION
  Report Type: Spontaneous
  Country: CA (occurrence: CA)
  Receive Date: 20200512
  Receipt Date: 20200512
  Transmission Date: 20200714
  Serious: Yes (Life-Threatening)
  Sender: FDA-Public Use
  Company Number: CA-ROCHE-2597017

PATIENT
  Age: 80 Year
  Sex: Male

DRUGS (1)
  1. RITUXAN [Suspect]
     Active Substance: RITUXIMAB
     Indication: PRODUCT USED FOR UNKNOWN INDICATION
     Route: 041

REACTIONS (10)
  - Rales [Recovering/Resolving]
  - Resuscitation [Recovering/Resolving]
  - Oxygen saturation decreased [Recovering/Resolving]
  - Feeling cold [Recovering/Resolving]
  - Blood pressure increased [Recovering/Resolving]
  - Breath sounds abnormal [Recovering/Resolving]
  - Dyspnoea [Recovering/Resolving]
  - Palpitations [Recovering/Resolving]
  - Wheezing [Recovering/Resolving]
  - Somnolence [Recovering/Resolving]
